FAERS Safety Report 8265827-7 (Version None)
Quarter: 2012Q2

REPORT INFORMATION
  Report Type: 
  Country: None (occurrence: None)
  Receive Date: 20120404
  Receipt Date: 20120322
  Transmission Date: 20120825
  Serious: Yes (Hospitalization)
  Sender: FDA-Public Use
  Company Number: USA/USA/12/0023726

PATIENT
  Age: 79 Year
  Sex: Male

DRUGS (17)
  1. SIMVASTATIN [Suspect]
     Indication: PRODUCT USED FOR UNKNOWN INDICATION
     Dosage: 20 MG, 1 D
  2. DOXAZOSIN MESYLATE [Suspect]
     Indication: PRODUCT USED FOR UNKNOWN INDICATION
     Dosage: 8 MG, 1 D
  3. HYDRALAZINE (HYDRALAZINE HYDROCHLORIDE) [Concomitant]
  4. FERROUS SULFATE (FERROUS SULFATE EXSICCATED) [Concomitant]
  5. ASPIRIN [Concomitant]
  6. FINASTERIDE [Suspect]
     Indication: PRODUCT USED FOR UNKNOWN INDICATION
     Dosage: 5 MG, 1 D
  7. AMLODIPINE BESYLATE [Suspect]
     Indication: PRODUCT USED FOR UNKNOWN INDICATION
     Dosage: 10 MG, 1 D
  8. ERGOCALCIFEROL (VITAMIDYNE A AND D) [Concomitant]
  9. LACTULOSE [Concomitant]
  10. TRAVOPROST (TRAVOPROST) [Concomitant]
  11. GEMFIBROZIL [Suspect]
     Indication: PRODUCT USED FOR UNKNOWN INDICATION
     Dosage: 600 MG, 2 IN 1 D
  12. FUROSEMIDE (FUROSEMIDE SODIUM) [Concomitant]
  13. LISINOPRIL [Concomitant]
  14. METOPROLOL SUCCINATE [Concomitant]
  15. LEVOTHYROXINE SODIUM [Concomitant]
  16. SODIUM POLYSTYRENE SULFONATE (SODIUM POLYSTYRENE SULFONATE/BETAXOLOL H [Concomitant]
  17. INSULIN GLARGINE (INSULIN GLARGINE) [Concomitant]

REACTIONS (17)
  - PAIN [None]
  - PAIN IN EXTREMITY [None]
  - MITRAL VALVE INCOMPETENCE [None]
  - TRICUSPID VALVE INCOMPETENCE [None]
  - MYOPATHY [None]
  - IRON DEFICIENCY ANAEMIA [None]
  - ABDOMINAL DISTENSION [None]
  - ABDOMINAL PAIN [None]
  - ILEUS [None]
  - RENAL FAILURE CHRONIC [None]
  - EROSIVE DUODENITIS [None]
  - NECROSIS [None]
  - DRUG INTERACTION [None]
  - PARAESTHESIA [None]
  - HAEMODIALYSIS [None]
  - MUSCULAR WEAKNESS [None]
  - GAIT DISTURBANCE [None]
